FAERS Safety Report 5525643-3 (Version None)
Quarter: 2007Q4

REPORT INFORMATION
  Report Type: 
  Country: None (occurrence: None)
  Receive Date: 20071126
  Receipt Date: 20071113
  Transmission Date: 20080405
  Serious: Yes (Hospitalization, Other)
  Sender: FDA-Public Use
  Company Number: US-AMGEN-US252513

PATIENT

DRUGS (8)
  1. PROCRIT [Suspect]
     Indication: ANAEMIA
  2. INFERGEN [Suspect]
     Indication: HEPATITIS C
     Route: 030
     Dates: start: 20070525
  3. RIBAVIRIN [Suspect]
     Indication: HEPATITIS C
     Route: 048
     Dates: start: 20070525
  4. PRANDIN [Concomitant]
  5. LANTUS [Concomitant]
  6. DIOVAN [Concomitant]
  7. NORVASC [Concomitant]
  8. AMBIEN [Concomitant]

REACTIONS (6)
  - AMNESIA [None]
  - ATRIOVENTRICULAR BLOCK FIRST DEGREE [None]
  - CONVULSION [None]
  - FATIGUE [None]
  - LOSS OF CONSCIOUSNESS [None]
  - SYNCOPE [None]
